FAERS Safety Report 6716615-1 (Version None)
Quarter: 2010Q2

REPORT INFORMATION
  Report Type: 
  Country: None (occurrence: None)
  Receive Date: 20100507
  Receipt Date: 20100419
  Transmission Date: 20101027
  Serious: Yes (Other)
  Sender: FDA-Public Use
  Company Number: BE-MERCK-1004USA01211

PATIENT
  Age: 42 Year
  Sex: Female

DRUGS (1)
  1. PRINIVIL [Suspect]
     Route: 048

REACTIONS (2)
  - ACUTE ABDOMEN [None]
  - ANGIOEDEMA [None]
